FAERS Safety Report 6626760-7 (Version None)
Quarter: 2010Q1

REPORT INFORMATION
  Report Type: 
  Country: None (occurrence: None)
  Receive Date: 20100311
  Receipt Date: 20100303
  Transmission Date: 20100710
  Serious: Yes (Hospitalization)
  Sender: FDA-Public Use
  Company Number: US-BIOGENIDEC-2010BI007511

PATIENT
  Age: 48 Year
  Sex: Female
  Weight: 62 kg

DRUGS (2)
  1. TYSABRI [Suspect]
     Indication: MULTIPLE SCLEROSIS
     Route: 042
     Dates: start: 20070901, end: 20091101
  2. BACLOFEN [Concomitant]
     Indication: MUSCLE SPASTICITY

REACTIONS (4)
  - ARTHRALGIA [None]
  - ARTHRITIS [None]
  - CARTILAGE ATROPHY [None]
  - CARTILAGE INJURY [None]
